FAERS Safety Report 7303702-2 (Version None)
Quarter: 2011Q1

REPORT INFORMATION
  Report Type: 
  Country: None (occurrence: None)
  Receive Date: 20110221
  Receipt Date: 20101126
  Transmission Date: 20110831
  Serious: Yes (Other)
  Sender: FDA-Public Use
  Company Number: IT-BAYER-201030983GPV

PATIENT
  Sex: Male

DRUGS (2)
  1. HYDROCHLOROTHIAZIDE W/ OLMESARTAN MEDOXOMIL [Concomitant]
  2. CIPROXIN [Suspect]
     Indication: CYSTITIS HAEMORRHAGIC
     Dosage: DAILY DOSE 1000 MG
     Route: 048
     Dates: start: 20091113, end: 20091115

REACTIONS (4)
  - DYSPHONIA [None]
  - FACE OEDEMA [None]
  - DYSPNOEA [None]
  - ERYTHEMA [None]
